FAERS Safety Report 16049374 (Version 1)
Quarter: 2019Q1

REPORT INFORMATION
  Report Type: Spontaneous
  Country: US (occurrence: US)
  Receive Date: 20190307
  Receipt Date: 20190307
  Transmission Date: 20190418
  Serious: No
  Sender: FDA-Public Use
  Company Number: US-PFIZER INC-2019093136

PATIENT

DRUGS (1)
  1. PREMARIN [Suspect]
     Active Substance: ESTROGENS, CONJUGATED
     Dosage: UNK

REACTIONS (5)
  - Vulvovaginal pain [Unknown]
  - Atrophic vulvovaginitis [Unknown]
  - Asthma [Unknown]
  - Arthritis [Unknown]
  - Pain in extremity [Unknown]
